FAERS Safety Report 7875896-1 (Version None)
Quarter: 2011Q4

REPORT INFORMATION
  Report Type: 
  Country: None (occurrence: None)
  Receive Date: 20111031
  Receipt Date: 20111020
  Transmission Date: 20120403
  Serious: Yes (Disabling)
  Sender: FDA-Public Use
  Company Number: US-ASTRAZENECA-2011SE63815

PATIENT
  Age: 51 Year
  Sex: Female

DRUGS (1)
  1. MERREM [Suspect]
     Route: 042

REACTIONS (2)
  - MENTAL DISABILITY [None]
  - PARALYSIS [None]
